FAERS Safety Report 8247014-1 (Version None)
Quarter: 2012Q1

REPORT INFORMATION
  Report Type: 
  Country: None (occurrence: None)
  Receive Date: 20120330
  Receipt Date: 20120330
  Transmission Date: 20120608
  Serious: Yes (Disabling)
  Sender: FDA-Public Use
  Company Number: None

PATIENT
  Age: 2 Year
  Sex: Female
  Weight: 14.9 kg

DRUGS (1)
  1. ONCASPAR [Suspect]
     Indication: ACUTE LYMPHOCYTIC LEUKAEMIA
     Dosage: 1525 UNITS -STOPPED EARLY-
     Route: 041

REACTIONS (5)
  - PRURITUS [None]
  - WHEEZING [None]
  - INFUSION RELATED REACTION [None]
  - SOMNOLENCE [None]
  - LIP SWELLING [None]
